FAERS Safety Report 7997786-6 (Version None)
Quarter: 2011Q4

REPORT INFORMATION
  Report Type: 
  Country: None (occurrence: None)
  Receive Date: 20111221
  Receipt Date: 20110418
  Transmission Date: 20120403
  Serious: No
  Sender: FDA-Public Use
  Company Number: US-PFIZER INC-K201100468

PATIENT
  Age: 6 Year
  Sex: Male
  Weight: 21.315 kg

DRUGS (2)
  1. EPIPEN [Suspect]
     Indication: HYPERSENSITIVITY
     Dosage: 0.3 MG, SINGLE
     Route: 030
     Dates: start: 20110415, end: 20110415
  2. EPIPEN [Suspect]
     Indication: PHARYNGEAL OEDEMA

REACTIONS (2)
  - INJECTION SITE HAEMORRHAGE [None]
  - DRUG INEFFECTIVE [None]
